FAERS Safety Report 5669503-6 (Version None)
Quarter: 2008Q1

REPORT INFORMATION
  Report Type: 
  Country: None (occurrence: None)
  Receive Date: 20080317
  Receipt Date: 20080311
  Transmission Date: 20080703
  Serious: Yes (Other)
  Sender: FDA-Public Use
  Company Number: JP-ASTRAZENECA-2008AP01880

PATIENT
  Age: 18 Year
  Sex: Male

DRUGS (4)
  1. ANAPEINE INJECTION [Suspect]
     Dosage: 3-4 ML/HR DIV, PCA (2 ML)
     Route: 008
     Dates: start: 20080304, end: 20080306
  2. VOLTAREN [Concomitant]
     Route: 065
     Dates: start: 20080304, end: 20080306
  3. FENTANYL [Concomitant]
     Route: 008
     Dates: start: 20080304, end: 20080306
  4. DROLEPTAN [Concomitant]
     Dosage: DOSE UNKNOWN
     Route: 065
     Dates: start: 20080304, end: 20080306

REACTIONS (2)
  - MUSCLE SPASMS [None]
  - OCULAR DYSMETRIA [None]
